FAERS Safety Report 18447782 (Version 1)
Quarter: 2020Q4

REPORT INFORMATION
  Report Type: Spontaneous
  Country: FR (occurrence: FR)
  Receive Date: 20201031
  Receipt Date: 20201031
  Transmission Date: 20210114
  Serious: Yes (Hospitalization, Other)
  Sender: FDA-Public Use
  Company Number: FR-SCIEGEN-2019SCILIT00296

PATIENT
  Age: 46 Year
  Sex: Female

DRUGS (3)
  1. ARIPIPRAZOLE. [Suspect]
     Active Substance: ARIPIPRAZOLE
     Indication: DEPRESSION
  2. ROSUVASTATIN. [Interacting]
     Active Substance: ROSUVASTATIN
     Indication: HYPERCHOLESTEROLAEMIA
  3. INSULIN [Interacting]
     Active Substance: INSULIN NOS
     Indication: DIABETIC KETOACIDOSIS

REACTIONS (3)
  - Diabetic ketoacidosis [Unknown]
  - Hyperlipidaemia [Unknown]
  - Acute respiratory failure [Unknown]
